FAERS Safety Report 25956712 (Version 2)
Quarter: 2025Q4

REPORT INFORMATION
  Report Type: Spontaneous
  Country: KR (occurrence: KR)
  Receive Date: 20251024
  Receipt Date: 20251029
  Transmission Date: 20260119
  Serious: Yes (Hospitalization, Other)
  Sender: JOHNSON AND JOHNSON
  Company Number: KR-JNJFOC-20251019273

PATIENT
  Age: 37 Year
  Sex: Female

DRUGS (11)
  1. DARZALEX [Suspect]
     Active Substance: DARATUMUMAB
     Indication: Plasma cell myeloma
     Route: 058
     Dates: start: 20240813
  2. DARZALEX [Suspect]
     Active Substance: DARATUMUMAB
     Route: 058
     Dates: start: 20240819
  3. DARZALEX [Suspect]
     Active Substance: DARATUMUMAB
     Route: 058
     Dates: start: 20240826
  4. VELCADE [Suspect]
     Active Substance: BORTEZOMIB
     Indication: Plasma cell myeloma
     Route: 058
     Dates: start: 20240813
  5. VELCADE [Suspect]
     Active Substance: BORTEZOMIB
     Route: 058
     Dates: start: 20240819
  6. VELCADE [Suspect]
     Active Substance: BORTEZOMIB
     Route: 058
     Dates: start: 20240826
  7. THALIDOMIDE [Suspect]
     Active Substance: THALIDOMIDE
     Indication: Plasma cell myeloma
     Route: 048
     Dates: start: 20240813
  8. DEXAMETHASONE [Suspect]
     Active Substance: DEXAMETHASONE
     Indication: Plasma cell myeloma
     Route: 065
  9. SODIUM CHLORIDE [Concomitant]
     Active Substance: SODIUM CHLORIDE
     Indication: Product used for unknown indication
     Route: 042
     Dates: start: 20240819
  10. SODIUM CHLORIDE [Concomitant]
     Active Substance: SODIUM CHLORIDE
     Route: 042
     Dates: start: 20240826
  11. SODIUM CHLORIDE [Concomitant]
     Active Substance: SODIUM CHLORIDE
     Route: 042
     Dates: start: 20240813

REACTIONS (9)
  - Dyspnoea [Recovered/Resolved]
  - Pyrexia [Recovered/Resolved]
  - Chills [Recovered/Resolved]
  - Leukoencephalopathy [Recovered/Resolved]
  - Depressed level of consciousness [Recovered/Resolved]
  - Facial paralysis [Recovered/Resolved]
  - Hemiparesis [Recovered/Resolved]
  - Neoplasm [Recovered/Resolved]
  - Speech disorder [Recovered/Resolved]

NARRATIVE: CASE EVENT DATE: 20240902
